FAERS Safety Report 12804153 (Version 3)
Quarter: 2016Q4

REPORT INFORMATION
  Report Type: Spontaneous
  Country: JP (occurrence: JP)
  Receive Date: 20161003
  Receipt Date: 20161123
  Transmission Date: 20170207
  Serious: Yes (Hospitalization)
  Sender: FDA-Public Use
  Company Number: JP-ASTRAZENECA-2016SF04030

PATIENT
  Age: 27073 Day
  Sex: Female
  Weight: 43 kg

DRUGS (1)
  1. FASLODEX [Suspect]
     Active Substance: FULVESTRANT
     Indication: BREAST CANCER FEMALE
     Route: 030
     Dates: start: 20120216, end: 20160915

REACTIONS (1)
  - Anaphylactoid shock [Recovering/Resolving]

NARRATIVE: CASE EVENT DATE: 20160915
